FAERS Safety Report 8574118-6 (Version None)
Quarter: 2012Q3

REPORT INFORMATION
  Report Type: 
  Country: None (occurrence: None)
  Receive Date: 20120806
  Receipt Date: 20120801
  Transmission Date: 20120928
  Serious: Yes (Hospitalization)
  Sender: FDA-Public Use
  Company Number: PHHY2012JP003107

PATIENT
  Sex: Female
  Weight: 69 kg

DRUGS (3)
  1. GILENYA [Suspect]
     Indication: MULTIPLE SCLEROSIS
     Dosage: 0.5 MG, DAILY
     Route: 048
     Dates: start: 20111226
  2. ISOTONIC SOLUTIONS [Concomitant]
     Dosage: 100 ML, UNK
     Dates: start: 20120113, end: 20120115
  3. METHYLPREDNISOLONE SODIUM SUCCINATE [Concomitant]
     Dosage: 1000 MG, UNK
     Dates: start: 20120113, end: 20120115

REACTIONS (6)
  - VISUAL ACUITY REDUCED [None]
  - CENTRAL NERVOUS SYSTEM LESION [None]
  - BLOOD PRESSURE DECREASED [None]
  - MULTIPLE SCLEROSIS RELAPSE [None]
  - WHITE BLOOD CELL COUNT DECREASED [None]
  - LYMPHOCYTE COUNT DECREASED [None]
